FAERS Safety Report 19649754 (Version 1)
Quarter: 2021Q3

REPORT INFORMATION
  Report Type: Report from Study
  Country: ES (occurrence: ES)
  Receive Date: 20210803
  Receipt Date: 20210803
  Transmission Date: 20211014
  Serious: Yes (Hospitalization)
  Sender: FDA-Public Use
  Company Number: ES-TEVA-2021-ES-1938476

PATIENT
  Age: 75 Year
  Sex: Male

DRUGS (5)
  1. INTERFERON BETA?1B (30559A) [Concomitant]
     Indication: COVID-19
     Dosage: 4MU
     Route: 058
     Dates: start: 20200324, end: 20200324
  2. AMOXICILINA + ACIDO CLAVULANICO [Concomitant]
     Active Substance: AMOXICILLIN\CLAVULANIC ACID
     Dosage: 3GRAM
     Route: 042
     Dates: start: 20200324, end: 20200326
  3. HIDROXICLOROQUINA SULFATO (2143SU) [Suspect]
     Active Substance: HYDROXYCHLOROQUINE SULFATE
     Indication: COVID-19
     Dosage: 1.4GRAM
     Route: 048
     Dates: start: 20200324, end: 20200326
  4. BEMIPARINA SODICA (2817SO) [Concomitant]
     Dosage: 2500IU
     Route: 058
     Dates: start: 20200324, end: 20200327
  5. LOPINAVIR + RITONAVIR [Suspect]
     Active Substance: LOPINAVIR\RITONAVIR
     Indication: COVID-19
     Dosage: 800MILLIGRAM
     Route: 048
     Dates: start: 20200324, end: 20200327

REACTIONS (1)
  - Long QT syndrome [Recovered/Resolved]

NARRATIVE: CASE EVENT DATE: 20200325
